FAERS Safety Report 4296677-4 (Version None)
Quarter: 2004Q1

REPORT INFORMATION
  Report Type: 
  Country: None (occurrence: None)
  Receive Date: 20040217
  Receipt Date: 20031003
  Transmission Date: 20041129
  Serious: Yes (Death, Hospitalization)
  Sender: FDA-Public Use
  Company Number: WAES 0310USA00463

PATIENT
  Age: 65 Year
  Sex: Male

DRUGS (3)
  1. FOSAMAX [Suspect]
     Route: 048
     Dates: end: 20030901
  2. FOSAMAX [Suspect]
     Route: 048
  3. VITAMINS (UNSPECIFIED) [Suspect]

REACTIONS (8)
  - ADVERSE EVENT [None]
  - ASPIRATION [None]
  - CHOKING [None]
  - COUGH [None]
  - DYSPHAGIA [None]
  - FOREIGN BODY TRAUMA [None]
  - MYOCARDIAL INFARCTION [None]
  - PANIC REACTION [None]
